FAERS Safety Report 4543889-8 (Version None)
Quarter: 2005Q1

REPORT INFORMATION
  Report Type: 
  Country: None (occurrence: None)
  Receive Date: 20050103
  Receipt Date: 20041215
  Transmission Date: 20050727
  Serious: Yes (Hospitalization)
  Sender: FDA-Public Use
  Company Number: PHRM2004FR03702

PATIENT
  Age: 33 Year
  Sex: Male

DRUGS (4)
  1. BUTAZOLIDINE(PHENYBUTAZONE) TABLET [Suspect]
     Dosage: SEE IMAGE
     Route: 048
     Dates: start: 20030201, end: 20030201
  2. BUTAZOLIDINE(PHENYBUTAZONE) TABLET [Suspect]
     Dosage: SEE IMAGE
     Route: 048
     Dates: start: 20030613, end: 20030618
  3. SEROPRAM (CITALOPRAM HYDROBROMIDE) TABLET, 20 MG [Suspect]
     Dosage: ORAL
     Route: 048
     Dates: start: 20030613, end: 20030622
  4. SULFASALAZINE [Concomitant]

REACTIONS (3)
  - COLITIS ISCHAEMIC [None]
  - ILEAL ULCER [None]
  - TACHYCARDIA [None]
